FAERS Safety Report 16214165 (Version 3)
Quarter: 2019Q2

REPORT INFORMATION
  Report Type: Spontaneous
  Country: PT (occurrence: FR)
  Receive Date: 20190418
  Receipt Date: 20190517
  Transmission Date: 20190711
  Serious: Yes (Death, Hospitalization, Other)
  Sender: FDA-Public Use
  Company Number: PT-SUNOVION-2019SUN001571

PATIENT

DRUGS (30)
  1. ZEBINIX [Suspect]
     Active Substance: ESLICARBAZEPINE ACETATE
     Dosage: 1200 MG, QD
     Route: 048
     Dates: start: 20190409, end: 201904
  2. KEPPRA [Concomitant]
     Active Substance: LEVETIRACETAM
     Indication: EPILEPSY
     Dosage: 750 MG, 2X / DAY
     Route: 042
     Dates: start: 20190322, end: 20190404
  3. ZOLPIDEM [Concomitant]
     Active Substance: ZOLPIDEM\ZOLPIDEM TARTRATE
     Dosage: UNK
     Route: 065
     Dates: start: 20190331
  4. METOCLOPRAMIDE HCL [Concomitant]
     Active Substance: METOCLOPRAMIDE HYDROCHLORIDE
     Dosage: SOLUTION FOR INJECTION, 10MG/ 2ML
     Route: 065
     Dates: start: 20190405
  5. EXACYL [Concomitant]
     Active Substance: TRANEXAMIC ACID
     Dosage: SOLUTION FOR INJECTION, 500MG/5ML
     Route: 065
     Dates: start: 20190410
  6. HYDROXYZINE [Concomitant]
     Active Substance: HYDROXYZINE HYDROCHLORIDE
     Dosage: SOLUTION FOR INJECTION, 100MG/2ML
     Route: 065
     Dates: start: 20190410
  7. LOVENOX [Concomitant]
     Active Substance: ENOXAPARIN SODIUM
     Dosage: SOLUTION FOR INJECTION
     Route: 065
     Dates: start: 20190401, end: 20190409
  8. VIMPAT [Concomitant]
     Active Substance: LACOSAMIDE
     Indication: EPILEPSY
     Dosage: 100 MG, BID
     Dates: start: 20190409
  9. PANTOPRAZOLE SODIUM. [Concomitant]
     Active Substance: PANTOPRAZOLE SODIUM
     Dosage: 40 MG
     Route: 065
     Dates: start: 20190322
  10. SERESTA [Concomitant]
     Active Substance: OXAZEPAM
     Dosage: 10 MG
     Route: 065
     Dates: start: 20190331, end: 20190403
  11. RISPERDAL [Concomitant]
     Active Substance: RISPERIDONE
     Dosage: ORAL SOLUTION, 0.1 %
     Route: 065
     Dates: start: 20190402, end: 20190403
  12. FYCOMPA [Suspect]
     Active Substance: PERAMPANEL
     Indication: EPILEPSY
     Dosage: 6 MG, DAILY, VIA TUBE
     Route: 048
     Dates: start: 20190322, end: 20190409
  13. IPRATROPIUM [Concomitant]
     Active Substance: IPRATROPIUM
     Dosage: UNK
     Route: 065
     Dates: start: 20190322
  14. ATORVASTATINE SANDOZ [Concomitant]
     Active Substance: ATORVASTATIN
     Dosage: 10 MG
     Route: 065
     Dates: start: 20190322, end: 20190323
  15. PARACETAMOL [Concomitant]
     Active Substance: ACETAMINOPHEN
     Dosage: UNK, SOLUTION FOR INJECTION
     Route: 051
     Dates: start: 20190410
  16. SPASFON [Concomitant]
     Dosage: UNK
     Route: 065
     Dates: start: 20190322
  17. DIFFU-K [Concomitant]
     Active Substance: POTASSIUM CHLORIDE
     Dosage: CAPSULE, 8 MMOL
     Route: 065
     Dates: start: 20190414
  18. LEVETIRACETAM. [Concomitant]
     Active Substance: LEVETIRACETAM
     Dosage: SOLUTION FOR INJECTION, 500MG/5ML
     Route: 065
     Dates: start: 20190404
  19. SALBUTAMOL AL [Concomitant]
     Dosage: UNK
     Route: 065
     Dates: start: 20190322
  20. ZEBINIX [Suspect]
     Active Substance: ESLICARBAZEPINE ACETATE
     Indication: EPILEPSY
     Dosage: 1200 MG, DAILY, VIA TUBE
     Route: 048
     Dates: start: 2019, end: 20190408
  21. ESCITALOPRAM AN [Concomitant]
     Active Substance: ESCITALOPRAM OXALATE
     Dosage: 10 MG
     Route: 065
     Dates: start: 20190402
  22. VIMPAT [Concomitant]
     Active Substance: LACOSAMIDE
     Dosage: SOLUTION FOR INJECTION, 10 MG/ML
     Route: 065
     Dates: start: 20190409
  23. QUESTRAN [Concomitant]
     Active Substance: CHOLESTYRAMINE
     Dosage: UNK
     Route: 065
     Dates: start: 20190323
  24. BIPRETERAX [Concomitant]
     Active Substance: INDAPAMIDE\PERINDOPRIL
     Dosage: 10/2.5 MG
     Route: 065
     Dates: start: 20190401
  25. RIVOTRIL [Concomitant]
     Active Substance: CLONAZEPAM
     Dosage: SOLUTION FOR INJECTION, 1MG / 1ML
     Route: 065
     Dates: start: 20190405
  26. POLYIONIQUE G5 [Concomitant]
     Active Substance: DEXTROSE\POTASSIUM CHLORIDE\SODIUM CHLORIDE
     Dosage: 500 ML
     Route: 065
     Dates: start: 20190411
  27. OLIMEL E [Concomitant]
     Active Substance: AMINO ACIDS\DEXTROSE\ELECTROLYTES NOS\SOYBEAN OIL
     Route: 065
  28. FOLIC ACID DC [Concomitant]
     Dosage: UNK
     Route: 065
     Dates: start: 20190322
  29. BISOCE [Concomitant]
     Active Substance: BISOPROLOL
     Dosage: 2.5 MG
     Route: 065
     Dates: start: 20190401
  30. FUROSEMIDE. [Concomitant]
     Active Substance: FUROSEMIDE
     Dosage: SOLUTION FOR INJECTION, 20MG/2ML
     Route: 065
     Dates: start: 20190409

REACTIONS (9)
  - Nausea [Unknown]
  - Wrong technique in product usage process [Unknown]
  - Candida infection [Fatal]
  - Vomiting [Unknown]
  - Diarrhoea [Unknown]
  - Thrombocytopenia [Fatal]
  - Anaemia [Unknown]
  - Epilepsy [Recovered/Resolved]
  - Off label use [Unknown]

NARRATIVE: CASE EVENT DATE: 2019
